FAERS Safety Report 20315107 (Version 1)
Quarter: 2022Q1

REPORT INFORMATION
  Report Type: Spontaneous
  Country: US (occurrence: None)
  Receive Date: 20220110
  Receipt Date: 20220110
  Transmission Date: 20220423
  Serious: No
  Sender: FDA-Public Use
  Company Number: US-ROCHE-2728425

PATIENT
  Age: 80 Year
  Sex: Female

DRUGS (2)
  1. RITUXAN [Suspect]
     Active Substance: RITUXIMAB
     Indication: Rheumatoid arthritis
     Dosage: STARTED THE FIRST INFUSION ON SEPTEMBER 29TH AND SHE HAD HER SECOND INFUSION IN OCTOBER 13TH
     Route: 065
  2. RITUXAN [Suspect]
     Active Substance: RITUXIMAB
     Indication: Rheumatoid lung

REACTIONS (6)
  - Nausea [Unknown]
  - Abdominal pain upper [Unknown]
  - Back pain [Unknown]
  - Asthenia [Unknown]
  - Paraesthesia oral [Unknown]
  - Tremor [Unknown]

NARRATIVE: CASE EVENT DATE: 20200929
